FAERS Safety Report 5815369-0 (Version None)
Quarter: 2008Q3

REPORT INFORMATION
  Report Type: 
  Country: None (occurrence: None)
  Receive Date: 20080718
  Receipt Date: 20080708
  Transmission Date: 20090109
  Serious: Yes (Other)
  Sender: FDA-Public Use
  Company Number: CA-PFIZER INC-2008038722

PATIENT
  Sex: Female
  Weight: 68.9 kg

DRUGS (2)
  1. CHANTIX [Suspect]
     Indication: SMOKING CESSATION THERAPY
     Route: 048
     Dates: start: 20080110, end: 20080401
  2. NEXIUM [Concomitant]

REACTIONS (3)
  - DEPRESSIVE SYMPTOM [None]
  - PYREXIA [None]
  - WITHDRAWAL SYNDROME [None]
